FAERS Safety Report 20203695 (Version 1)
Quarter: 2021Q4

REPORT INFORMATION
  Report Type: Spontaneous
  Country: CA (occurrence: CA)
  Receive Date: 20211219
  Receipt Date: 20211219
  Transmission Date: 20220303
  Serious: No
  Sender: FDA-Public Use
  Company Number: CA-ALKEM LABORATORIES LIMITED-CA-ALKEM-2021-05972

PATIENT

DRUGS (1)
  1. METFORMIN HYDROCHLORIDE [Suspect]
     Active Substance: METFORMIN HYDROCHLORIDE
     Indication: Diabetes mellitus
     Dosage: 500 MILLIGRAM, OD
     Route: 048

REACTIONS (6)
  - Nausea [Unknown]
  - Diarrhoea [Unknown]
  - Proctitis [Unknown]
  - Dizziness [Unknown]
  - Cystitis [Unknown]
  - Myalgia [Unknown]
